FAERS Safety Report 4430984-7 (Version None)
Quarter: 2004Q3

REPORT INFORMATION
  Report Type: 
  Country: None (occurrence: None)
  Receive Date: 20040824
  Receipt Date: 20040818
  Transmission Date: 20050211
  Serious: Yes (Hospitalization)
  Sender: FDA-Public Use
  Company Number: GB-JNJFOC-20040805949

PATIENT
  Sex: Male

DRUGS (17)
  1. REMICADE [Suspect]
     Route: 042
  2. REMICADE [Suspect]
     Route: 042
  3. REMICADE [Suspect]
     Route: 042
  4. REMICADE [Suspect]
     Indication: RHEUMATOID ARTHRITIS
     Route: 042
  5. PREDNISOLONE [Concomitant]
  6. METHOTREXATE [Concomitant]
  7. RISEDRONATE [Concomitant]
  8. ARTHROTEC [Concomitant]
  9. ARTHROTEC [Concomitant]
  10. CALCICHEW [Concomitant]
  11. ASPIRIN [Concomitant]
  12. FOLIC ACID [Concomitant]
  13. LANSOPRAZOLE [Concomitant]
  14. FELODAPINE [Concomitant]
  15. GTN [Concomitant]
  16. ATENOLOL [Concomitant]
  17. SIMVASTATIN [Concomitant]

REACTIONS (2)
  - CHEST PAIN [None]
  - GASTRITIS [None]
